FAERS Safety Report 22264628 (Version 1)
Quarter: 2023Q2

REPORT INFORMATION
  Report Type: Spontaneous
  Country: US (occurrence: US)
  Receive Date: 20230428
  Receipt Date: 20230428
  Transmission Date: 20230722
  Serious: No
  Sender: FDA-Public Use
  Company Number: US-Ipsen Biopharmaceuticals, Inc.-2021-24707

PATIENT
  Age: 51 Year
  Sex: Male

DRUGS (1)
  1. SOMATULINE DEPOT [Suspect]
     Active Substance: LANREOTIDE ACETATE
     Indication: Acromegaly
     Dosage: 120MG/0.5ML
     Route: 065

REACTIONS (4)
  - Abdominal discomfort [Recovered/Resolved]
  - Product dose omission issue [Unknown]
  - Product quality issue [Unknown]
  - Device issue [Unknown]

NARRATIVE: CASE EVENT DATE: 20211011
